FAERS Safety Report 9936811 (Version 1)
Quarter: 2014Q1

REPORT INFORMATION
  Report Type: Spontaneous
  Country: US (occurrence: None)
  Receive Date: 20140109
  Receipt Date: 20140109
  Transmission Date: 20141002
  Serious: Yes (Other)
  Sender: FDA-Public Use
  Company Number: PHEH2013US023826

PATIENT
  Sex: Female

DRUGS (1)
  1. SIGNIFOR (PASIREOTIDE) UNKNOWN [Suspect]
     Indication: CUSHING^S SYNDROME
     Route: 058
     Dates: start: 2013, end: 2013

REACTIONS (3)
  - Flushing [None]
  - Hyperglycaemia [None]
  - Nausea [None]
